FAERS Safety Report 13261840 (Version 7)
Quarter: 2017Q2

REPORT INFORMATION
  Report Type: Report from Study
  Country: None (occurrence: TR)
  Receive Date: 20170222
  Receipt Date: 20170523
  Transmission Date: 20170830
  Serious: Yes (Death, Hospitalization, Other)
  Sender: FDA-Public Use
  Company Number: TR-ABBVIE-17P-161-1879034-00

PATIENT
  Age: 54 Year
  Sex: Male
  Weight: 105 kg

DRUGS (3)
  1. DUODOPA [Suspect]
     Active Substance: CARBIDOPA\LEVODOPA
     Indication: PARKINSON^S DISEASE
     Dosage: MORNING DOSE: 7.0 ML CONTINOUS DOSE: 5.9 ML EXTRA DOSE: 2.2 ML
     Route: 050
     Dates: start: 20150608
  2. DUODOPA [Suspect]
     Active Substance: CARBIDOPA\LEVODOPA
     Dosage: CONTINOUS DOSE HAS BEEN INCREASED FROM 5.9 ML TO 6. 4 ML.
     Route: 050
  3. PK MERZ [Concomitant]
     Active Substance: AMANTADINE SULFATE
     Indication: PARKINSON^S DISEASE
     Dosage: 2X2
     Route: 048
     Dates: start: 2002

REACTIONS (9)
  - Spinal fracture [Recovered/Resolved]
  - Stoma site infection [Not Recovered/Not Resolved]
  - Fall [Recovered/Resolved]
  - Pseudomonas test positive [Unknown]
  - Back pain [Recovered/Resolved]
  - Myocardial infarction [Fatal]
  - Back pain [Not Recovered/Not Resolved]
  - Gait disturbance [Not Recovered/Not Resolved]
  - Weight decreased [Not Recovered/Not Resolved]

NARRATIVE: CASE EVENT DATE: 2016
